FAERS Safety Report 10396442 (Version 1)
Quarter: 2014Q3

REPORT INFORMATION
  Report Type: Spontaneous
  Country: FI (occurrence: FI)
  Receive Date: 20140820
  Receipt Date: 20140820
  Transmission Date: 20150326
  Serious: Yes (Life-Threatening, Hospitalization)
  Sender: FDA-Public Use
  Company Number: FI-TEVA-501466ISR

PATIENT
  Age: 78 Year
  Sex: Male

DRUGS (11)
  1. DIGOXIN SEMI 0.125 MG [Suspect]
     Active Substance: DIGOXIN
     Dosage: 125 MICROGRAM DAILY;
     Route: 048
     Dates: start: 20140603, end: 20140701
  2. SOMAC 20 MG [Concomitant]
     Dosage: 20 MILLIGRAM DAILY;
     Route: 048
     Dates: start: 20140523
  3. MAREVAN FORTE 5 MG [Concomitant]
     Route: 048
     Dates: start: 20140526
  4. FURESIS 20 MG [Concomitant]
     Active Substance: FUROSEMIDE
     Dosage: 20 MILLIGRAM DAILY;
     Route: 048
     Dates: start: 20140523
  5. KALEORID 1 GR [Concomitant]
     Dosage: 1 GRAM DAILY;
     Route: 048
     Dates: start: 20140524
  6. METOHEXAL 190 MG [Concomitant]
     Dosage: 190 MILLIGRAM DAILY;
     Route: 048
     Dates: start: 20140522
  7. AMLORATIO 5 MG [Suspect]
     Active Substance: AMLODIPINE BESYLATE
     Dosage: 5 MILLIGRAM DAILY;
     Route: 048
     Dates: start: 20140623, end: 20140701
  8. SIMVASTATIN ACTAVIS 40 MG [Concomitant]
     Dosage: 40 MILLIGRAM DAILY;
     Route: 048
  9. PRIMASPAN 100 MG [Concomitant]
     Dosage: 100 MILLIGRAM DAILY;
     Route: 048
     Dates: start: 20140522
  10. CARDACE 2.5 MG [Suspect]
     Active Substance: RAMIPRIL
     Route: 048
     Dates: start: 20140523, end: 20140701
  11. CLOPIDOGREL ACTAVIS 75 MG [Concomitant]
     Dosage: 75 MILLIGRAM DAILY;
     Route: 048
     Dates: start: 20140522

REACTIONS (4)
  - Leukopenia [Recovered/Resolved]
  - Agranulocytosis [Recovered/Resolved]
  - Bone marrow failure [Recovered/Resolved]
  - Neutropenia [Recovered/Resolved]

NARRATIVE: CASE EVENT DATE: 20140701
